FAERS Safety Report 21751841 (Version 1)
Quarter: 2022Q4

REPORT INFORMATION
  Report Type: Report from Study
  Country: JP (occurrence: JP)
  Receive Date: 20221220
  Receipt Date: 20221220
  Transmission Date: 20230113
  Serious: Yes (Other)
  Sender: FDA-Public Use
  Company Number: JP-SA-2021SA130472

PATIENT
  Age: 66 Year
  Sex: Male
  Weight: 54.6 kg

DRUGS (9)
  1. ALEMTUZUMAB [Suspect]
     Active Substance: ALEMTUZUMAB
     Indication: T-cell prolymphocytic leukaemia
     Dosage: 30 MG, QD
     Route: 041
     Dates: start: 20210412, end: 20210412
  2. ALEMTUZUMAB [Suspect]
     Active Substance: ALEMTUZUMAB
     Dosage: 3 MG, QD
     Route: 041
     Dates: start: 20210329, end: 20210329
  3. ALEMTUZUMAB [Suspect]
     Active Substance: ALEMTUZUMAB
     Dosage: 10 MG, QD
     Route: 041
     Dates: start: 20210330, end: 20210330
  4. ALEMTUZUMAB [Suspect]
     Active Substance: ALEMTUZUMAB
     Dosage: 30 MG, QD
     Route: 041
     Dates: start: 20210402, end: 20210409
  5. FEBUXOSTAT [Concomitant]
     Active Substance: FEBUXOSTAT
     Indication: T-cell prolymphocytic leukaemia
     Dosage: 3 DF, 7 TIMES/DAY
     Route: 048
     Dates: start: 20210406, end: 20210426
  6. LANSOPRAZOLE [Concomitant]
     Active Substance: LANSOPRAZOLE
     Indication: T-cell prolymphocytic leukaemia
     Dosage: 1 DF, 7 TIMES/DAY
     Route: 048
     Dates: start: 20210406, end: 20210426
  7. SULFAMETHOXAZOLE\TRIMETHOPRIM [Concomitant]
     Active Substance: SULFAMETHOXAZOLE\TRIMETHOPRIM
     Indication: T-cell prolymphocytic leukaemia
     Dosage: 2 DF, BID
     Route: 048
     Dates: start: 20210406, end: 20210422
  8. FLUCONAZOLE [Concomitant]
     Active Substance: FLUCONAZOLE
     Indication: T-cell prolymphocytic leukaemia
     Dosage: 1 CAP, 7 TIMES/DAY
     Route: 048
     Dates: start: 20210406, end: 20210426
  9. FILGRASTIM [Concomitant]
     Active Substance: FILGRASTIM
     Indication: T-cell prolymphocytic leukaemia
     Dosage: 1 SYRINGE, QD
     Route: 048
     Dates: start: 20210405, end: 20210405

REACTIONS (3)
  - Humoral immune defect [Unknown]
  - Off label use [Unknown]
  - Cytomegalovirus infection reactivation [Recovered/Resolved]

NARRATIVE: CASE EVENT DATE: 20210412
